FAERS Safety Report 20030658 (Version 1)
Quarter: 2021Q4

REPORT INFORMATION
  Report Type: Spontaneous
  Country: FR (occurrence: FR)
  Receive Date: 20211103
  Receipt Date: 20211103
  Transmission Date: 20220303
  Serious: Yes (Hospitalization)
  Sender: FDA-Public Use
  Company Number: None

PATIENT
  Age: 73 Year
  Sex: Female
  Weight: 57 kg

DRUGS (9)
  1. LIPTRUZET [Suspect]
     Active Substance: ATORVASTATIN CALCIUM\EZETIMIBE
     Indication: Hypercholesterolaemia
     Dosage: 1 DOSAGE FORM, QD, FORMULATION REPORTED AS FILM COATED TABLET
     Route: 048
     Dates: start: 202103, end: 20210715
  2. COMIRNATY [Suspect]
     Active Substance: TOZINAMERAN
     Indication: COVID-19 immunisation
     Dosage: 2 DOSAGE FORM, D1+D2, FREQUENCY REPORTED AS CYCLICAL, FORMULATION: DISPERSION TO DILUTE FOR INJECTAB
     Route: 030
     Dates: start: 20210311, end: 20210407
  3. CANDESARTAN CILEXETIL [Concomitant]
     Active Substance: CANDESARTAN CILEXETIL
     Dosage: UNK
  4. CALCIDOSE [CALCIUM CARBONATE;COLECALCIFEROL;PHYTOMENADIONE] [Concomitant]
     Dosage: UNK
  5. ACTIVATED CHARCOAL\MAGNESIUM OXIDE\SIMETHICONE [Concomitant]
     Active Substance: ACTIVATED CHARCOAL\MAGNESIUM OXIDE\SIMETHICONE
     Dosage: UNK
  6. VALACYCLOVIR HYDROCHLORIDE [Concomitant]
     Active Substance: VALACYCLOVIR HYDROCHLORIDE
     Dosage: UNK
  7. PANTOPRAZOLE [Concomitant]
     Active Substance: PANTOPRAZOLE
     Dosage: UNK
  8. DOLIPRANE [Concomitant]
     Active Substance: ACETAMINOPHEN
     Dosage: UNK
  9. HERBALS [Concomitant]
     Active Substance: HERBALS
     Dosage: UNK

REACTIONS (1)
  - Oligoarthritis [Unknown]

NARRATIVE: CASE EVENT DATE: 20210430
